FAERS Safety Report 10618930 (Version 1)
Quarter: 2014Q4

REPORT INFORMATION
  Report Type: Spontaneous
  Country: GB (occurrence: None)
  Receive Date: 20141126
  Receipt Date: 20141126
  Transmission Date: 20150529
  Serious: Yes (Death)
  Sender: FDA-Public Use
  Company Number: 20142447

PATIENT
  Sex: Female

DRUGS (1)
  1. METOJECT (METHOTREXATE) [Suspect]
     Active Substance: METHOTREXATE SODIUM
     Dosage: (GALENICAL FORM / /ROUTE OF ADMINISTRATION) : SOLUTION FOR INJECTION IN PRE-FILLED SYRINGE ?/

REACTIONS (1)
  - Death [None]
